FAERS Safety Report 6587902-5 (Version None)
Quarter: 2010Q1

REPORT INFORMATION
  Report Type: 
  Country: None (occurrence: None)
  Receive Date: 20100217
  Receipt Date: 20100217
  Transmission Date: 20100710
  Serious: No
  Sender: FDA-Public Use
  Company Number: None

PATIENT
  Age: 50 Year
  Sex: Female
  Weight: 77.1115 kg

DRUGS (2)
  1. LEVAQUIN [Suspect]
     Indication: SINUSITIS
     Dates: start: 20081001, end: 20081010
  2. LEVAQUIN [Suspect]
     Indication: SINUSITIS
     Dates: start: 20081201, end: 20081210

REACTIONS (6)
  - ARTHRALGIA [None]
  - EXERCISE TOLERANCE DECREASED [None]
  - GAIT DISTURBANCE [None]
  - JOINT SWELLING [None]
  - MUSCULOSKELETAL PAIN [None]
  - PAIN IN EXTREMITY [None]
